FAERS Safety Report 5372240-9 (Version None)
Quarter: 2007Q2

REPORT INFORMATION
  Report Type: 
  Country: None (occurrence: None)
  Receive Date: 20070627
  Receipt Date: 20070501
  Transmission Date: 20071010
  Serious: Yes (Other)
  Sender: FDA-Public Use
  Company Number: US-PURDUE-USA_2007_0027677

PATIENT
  Age: 33 Year
  Sex: Male
  Weight: 78 kg

DRUGS (5)
  1. OXYCONTIN [Suspect]
     Indication: BACK PAIN
     Dosage: UNK, SEE TEXT
     Dates: start: 19990827
  2. LOPRESSOR [Concomitant]
     Dosage: 25 MG, BID
  3. DIAZEPAM [Concomitant]
     Dosage: 5 MG, TID
  4. PROZAC [Concomitant]
     Dosage: 60 MG, DAILY
  5. ISOSORBIDE DINITRATE [Concomitant]
     Dosage: 60 MG, DAILY

REACTIONS (9)
  - CARDIAC DISORDER [None]
  - CARDIAC FLUTTER [None]
  - DRUG DEPENDENCE [None]
  - DRUG TOLERANCE [None]
  - GENERAL PHYSICAL HEALTH DETERIORATION [None]
  - HYPERHIDROSIS [None]
  - INTENTIONAL DRUG MISUSE [None]
  - MALAISE [None]
  - MENTAL DISORDER [None]
